FAERS Safety Report 9178786 (Version 1)
Quarter: 2013Q1

REPORT INFORMATION
  Report Type: Report from Study
  Country: GB (occurrence: GB)
  Receive Date: 20130321
  Receipt Date: 20130321
  Transmission Date: 20140127
  Serious: Yes (Other)
  Sender: FDA-Public Use
  Company Number: GB-ROCHE-1203914

PATIENT
  Sex: 0

DRUGS (2)
  1. TRASTUZUMAB [Suspect]
     Indication: BREAST CANCER
     Dosage: IN A 28 DAY CYCLE
     Route: 065
  2. INVESTIGATIONAL ANTINEOPLASTIC AGENT [Suspect]
     Indication: BREAST CANCER
     Dosage: 55 OR 70 MG/M2 IN A 28-DAY CYCLE
     Route: 042

REACTIONS (5)
  - Visual impairment [Unknown]
  - Diarrhoea [Unknown]
  - Vision blurred [Unknown]
  - Photopsia [Unknown]
  - Nausea [Unknown]
